FAERS Safety Report 6012956-4 (Version None)
Quarter: 2008Q4

REPORT INFORMATION
  Report Type: 
  Country: None (occurrence: None)
  Receive Date: 20081219
  Receipt Date: 20071112
  Transmission Date: 20090506
  Serious: No
  Sender: FDA-Public Use
  Company Number: A0693912A

PATIENT
  Sex: Male

DRUGS (5)
  1. TRIZIVIR [Suspect]
     Indication: HIV INFECTION
     Dosage: 1TAB TWICE PER DAY
     Route: 048
     Dates: start: 20000101
  2. LISINOPRIL [Concomitant]
  3. IBUPROFEN [Concomitant]
  4. ALPRAZOLAM [Concomitant]
  5. GEMFIBROZIL [Concomitant]

REACTIONS (4)
  - ANXIETY [None]
  - FACIAL WASTING [None]
  - MUSCULAR WEAKNESS [None]
  - NEUROPATHY PERIPHERAL [None]
